FAERS Safety Report 8078107-X (Version None)
Quarter: 2012Q1

REPORT INFORMATION
  Report Type: 
  Country: None (occurrence: None)
  Receive Date: 20120127
  Receipt Date: 20110105
  Transmission Date: 20120608
  Serious: No
  Sender: FDA-Public Use
  Company Number: US-ABBOTT-10P-163-0684606-00

PATIENT
  Sex: Male
  Weight: 98.518 kg

DRUGS (2)
  1. HUMIRA [Suspect]
     Indication: PSORIATIC ARTHROPATHY
     Dosage: NOT REPORTED
     Route: 058
     Dates: start: 20091124, end: 20100726
  2. HUMIRA [Suspect]
     Route: 058

REACTIONS (1)
  - HAEMATURIA [None]
